FAERS Safety Report 5270982-7 (Version None)
Quarter: 2007Q1

REPORT INFORMATION
  Report Type: 
  Country: None (occurrence: None)
  Receive Date: 20061214
  Receipt Date: 20060720
  Transmission Date: 20070707
  Serious: Yes (Other)
  Sender: FDA-Public Use
  Company Number: 2005064608

PATIENT
  Age: 50 Year
  Sex: Female
  Weight: 56.6996 kg

DRUGS (1)
  1. BEXTRA [Suspect]
     Indication: MYALGIA
     Dosage: 20 MG (10 MG)
     Dates: start: 20040421, end: 20040424

REACTIONS (1)
  - ACUTE MYOCARDIAL INFARCTION [None]
